FAERS Safety Report 15934433 (Version 1)
Quarter: 2019Q1

REPORT INFORMATION
  Report Type: Spontaneous
  Country: IE (occurrence: IE)
  Receive Date: 20190207
  Receipt Date: 20190207
  Transmission Date: 20190417
  Serious: Yes (Death, Other)
  Sender: FDA-Public Use
  Company Number: IE-MYLANLABS-2019M1010974

PATIENT
  Age: 33 Year
  Sex: Female
  Weight: 46 kg

DRUGS (7)
  1. PROZAMEL [Concomitant]
     Dosage: 60 MILLIGRAM
     Route: 048
  2. DALMANE [Concomitant]
     Active Substance: FLURAZEPAM HYDROCHLORIDE
     Dosage: 30 MILLIGRAM (AT NIGHT)
     Route: 048
  3. OLANZAPINE. [Interacting]
     Active Substance: OLANZAPINE
     Indication: PRODUCT USED FOR UNKNOWN INDICATION
     Dosage: 10 MILLIGRAM, TID (THREE TIMES DAILY)
     Route: 048
  4. ATIVAN [Concomitant]
     Active Substance: LORAZEPAM
     Dosage: 2 MILLIGRAM, BID (2 TABLETS TWICE DAILY)
     Route: 048
  5. ARIPIPRAZOLE. [Suspect]
     Active Substance: ARIPIPRAZOLE
     Indication: PRODUCT USED FOR UNKNOWN INDICATION
     Dosage: UNK
     Route: 048
  6. LYRICA [Concomitant]
     Active Substance: PREGABALIN
     Dosage: 100 MILLIGRAM, TID (THREE TIMES DAILY, ONE MANE 2 NOCTE)
     Route: 048
  7. PHENERGAN [Concomitant]
     Active Substance: PROMETHAZINE HYDROCHLORIDE
     Dosage: 2 TABLETS AT NIGHT
     Route: 048

REACTIONS (3)
  - Pulmonary oedema [Unknown]
  - Drug interaction [Fatal]
  - Pulmonary congestion [Unknown]
